FAERS Safety Report 24671667 (Version 3)
Quarter: 2024Q4

REPORT INFORMATION
  Report Type: Report from Study
  Country: JP (occurrence: JP)
  Receive Date: 20241127
  Receipt Date: 20241231
  Transmission Date: 20250115
  Serious: Yes (Hospitalization, Other)
  Sender: PFIZER
  Company Number: JP-PFIZER INC-202300294599

PATIENT
  Age: 16 Day
  Sex: Male
  Weight: 3.103 kg

DRUGS (10)
  1. SIROLIMUS [Suspect]
     Active Substance: SIROLIMUS
     Indication: Lymphatic malformation
     Dosage: 0.06 MG, 1X/DAY
     Route: 048
     Dates: start: 20230201, end: 20230321
  2. SIROLIMUS [Suspect]
     Active Substance: SIROLIMUS
     Dosage: 0.07 MG, 1X/DAY
     Route: 048
     Dates: start: 20230322, end: 20230406
  3. SIROLIMUS [Suspect]
     Active Substance: SIROLIMUS
     Dosage: 0.09 MG, 1X/DAY
     Route: 048
     Dates: start: 20230407, end: 20230423
  4. SIROLIMUS [Suspect]
     Active Substance: SIROLIMUS
     Dosage: 0.08 MG, 1X/DAY
     Route: 048
     Dates: start: 20230424, end: 20230524
  5. SIROLIMUS [Suspect]
     Active Substance: SIROLIMUS
     Dosage: 0.1 MG, 1X/DAY
     Route: 048
     Dates: start: 20230525, end: 20230627
  6. SIROLIMUS [Suspect]
     Active Substance: SIROLIMUS
     Dosage: 0.2 MG, 1X/DAY
     Route: 048
     Dates: start: 20230628, end: 20231024
  7. SIROLIMUS [Suspect]
     Active Substance: SIROLIMUS
     Dosage: 0.4 MG, 1X/DAY
     Route: 048
     Dates: start: 20231025, end: 20231121
  8. SIROLIMUS [Suspect]
     Active Substance: SIROLIMUS
     Dosage: 0.6 MG, 1X/DAY
     Route: 048
     Dates: start: 20231122
  9. MENATETRENONE [Concomitant]
     Active Substance: MENATETRENONE
     Indication: Prophylaxis
     Dosage: 1 ML,1 WK
     Route: 048
     Dates: start: 20230126, end: 20230426
  10. FERRIC PYROPHOSPHATE [Concomitant]
     Active Substance: FERRIC PYROPHOSPHATE
     Dosage: UNK
     Dates: start: 20230420, end: 20230905

REACTIONS (5)
  - Septic pulmonary embolism [Recovered/Resolved]
  - Nasopharyngitis [Recovered/Resolved]
  - Fever neonatal [Recovered/Resolved]
  - Wrong technique in product usage process [Unknown]
  - Bronchitis [Recovering/Resolving]

NARRATIVE: CASE EVENT DATE: 20230211
